FAERS Safety Report 19493002 (Version 1)
Quarter: 2021Q3

REPORT INFORMATION
  Report Type: Spontaneous
  Country: DE (occurrence: DE)
  Receive Date: 20210705
  Receipt Date: 20210705
  Transmission Date: 20211014
  Serious: Yes (Hospitalization)
  Sender: FDA-Public Use
  Company Number: DE-JNJFOC-20210700222

PATIENT
  Age: 54 Year
  Sex: Male

DRUGS (2)
  1. ACETYLSALICYLIC ACID [Suspect]
     Active Substance: ASPIRIN
     Indication: PRODUCT USED FOR UNKNOWN INDICATION
     Dosage: DEMAND TABLETS, AS REQUIRED?ADDITIONAL INFO: MEDICATION ERROR
     Route: 048
  2. IBUPROFEN. [Suspect]
     Active Substance: IBUPROFEN
     Indication: PRODUCT USED FOR UNKNOWN INDICATION
     Dosage: ADDITIONAL INFO: MEDICATION ERROR?DEMAND TABLETS, AS REQUIRED
     Route: 048

REACTIONS (2)
  - Medication error [Unknown]
  - Headache [Unknown]
